FAERS Safety Report 10229944 (Version 1)
Quarter: 2014Q2

REPORT INFORMATION
  Report Type: Spontaneous
  Country: US (occurrence: None)
  Receive Date: 20140610
  Receipt Date: 20140610
  Transmission Date: 20141212
  Serious: Yes (Disabling)
  Sender: FDA-Public Use
  Company Number: None

PATIENT
  Age: 54 Year
  Sex: Female

DRUGS (1)
  1. ESZOPICLONE [Suspect]
     Indication: INSOMNIA
     Dosage: 2 PILLS AT BEDTIME TAKEN BY MOUTH
     Route: 048
     Dates: start: 20140519, end: 20140607

REACTIONS (5)
  - Fatigue [None]
  - Somnolence [None]
  - Drug ineffective [None]
  - Product substitution issue [None]
  - Wrong technique in drug usage process [None]
